FAERS Safety Report 4526351-8 (Version None)
Quarter: 2004Q4

REPORT INFORMATION
  Report Type: 
  Country: None (occurrence: None)
  Receive Date: 20041214
  Receipt Date: 20041104
  Transmission Date: 20050328
  Serious: Yes (Hospitalization, Other)
  Sender: FDA-Public Use
  Company Number: PHHO2004JP15641

PATIENT
  Age: 20 Year
  Sex: Female
  Weight: 44 kg

DRUGS (13)
  1. PREDONINE [Suspect]
     Indication: RENAL TRANSPLANT
     Dosage: 20 MG / DAY
     Route: 048
     Dates: start: 20041021
  2. PREDONINE [Suspect]
     Dosage: 10 MG / DAY
     Route: 048
  3. CELLCEPT [Suspect]
     Indication: RENAL TRANSPLANT
     Dosage: 2000 MG / DAY
     Route: 048
     Dates: start: 20041021, end: 20041129
  4. NEORAL [Suspect]
     Indication: RENAL TRANSPLANT
     Dosage: UNK, UNK
     Route: 048
     Dates: start: 20041104, end: 20041104
  5. NEORAL [Suspect]
     Dosage: 400 MG / DAY
     Route: 048
     Dates: start: 20041106, end: 20041107
  6. NEORAL [Suspect]
     Dosage: 200 MG / DAY
     Route: 048
     Dates: start: 20041108, end: 20041108
  7. NEORAL [Suspect]
     Dosage: 550 MG / DAY
     Route: 048
     Dates: start: 20041102, end: 20041103
  8. NEORAL [Suspect]
     Dosage: 400 MG / DAY
     Route: 048
     Dates: start: 20041021, end: 20041025
  9. NEORAL [Suspect]
     Dosage: 500 MG / DAY
     Route: 048
     Dates: start: 20041026, end: 20041101
  10. NEORAL [Suspect]
     Dosage: 200 MG / DAY
     Route: 048
     Dates: start: 20041119, end: 20041130
  11. NEORAL [Suspect]
     Dosage: 130 MG / DAY
     Route: 048
     Dates: start: 20041201, end: 20041202
  12. NEORAL [Suspect]
     Dosage: 130 MG, BID
     Route: 048
     Dates: start: 20041203
  13. NEORAL [Suspect]
     Dosage: 150 MG / DAY
     Route: 048
     Dates: start: 20040811, end: 20041118

REACTIONS (13)
  - BACTERIAL INFECTION [None]
  - BLOOD CREATININE INCREASED [None]
  - BLOOD IMMUNOGLOBULIN G DECREASED [None]
  - DEHYDRATION [None]
  - ELECTROLYTE IMBALANCE [None]
  - HAEMODIALYSIS [None]
  - HEPATIC ENZYME INCREASED [None]
  - NEPHROPATHY TOXIC [None]
  - PYELONEPHRITIS ACUTE [None]
  - PYREXIA [None]
  - RENAL IMPAIRMENT [None]
  - URINARY TRACT INFECTION [None]
  - WEIGHT INCREASED [None]
